FAERS Safety Report 4543728-5 (Version None)
Quarter: 2004Q4

REPORT INFORMATION
  Report Type: 
  Country: None (occurrence: None)
  Receive Date: 20041229
  Receipt Date: 20041229
  Transmission Date: 20050328
  Serious: Yes (Other)
  Sender: FDA-Public Use
  Company Number: None

PATIENT
  Sex: Male

DRUGS (2)
  1. VANCOMYCIN 5.00 MG/ML BAXTER [Suspect]
     Indication: ACUTE SINUSITIS
     Dosage: 16 M Q12H IV
     Route: 042
     Dates: start: 20041208, end: 20041224
  2. ROCEPHIN [Suspect]
     Indication: ACUTE SINUSITIS
     Dosage: 16 M Q 12H IV
     Route: 042
     Dates: start: 20041208, end: 20041224

REACTIONS (4)
  - ABDOMINAL PAIN UPPER [None]
  - RASH GENERALISED [None]
  - RASH PRURITIC [None]
  - RASH PUSTULAR [None]
